FAERS Safety Report 25616767 (Version 1)
Quarter: 2025Q3

REPORT INFORMATION
  Report Type: Spontaneous
  Country: US (occurrence: US)
  Receive Date: 20250729
  Receipt Date: 20250729
  Transmission Date: 20251021
  Serious: Yes (Death, Life-Threatening, Hospitalization, Other)
  Sender: STRIDES
  Company Number: US-STRIDES ARCOLAB LIMITED-2025SP009253

PATIENT
  Age: 4 Decade
  Sex: Male

DRUGS (7)
  1. MINOCYCLINE [Suspect]
     Active Substance: MINOCYCLINE HYDROCHLORIDE
     Indication: Lepromatous leprosy
     Route: 065
  2. PREDNISONE [Suspect]
     Active Substance: PREDNISONE
     Indication: Addison^s disease
     Route: 065
  3. DOXYCYCLINE [Suspect]
     Active Substance: DOXYCYCLINE
     Indication: Multiple organ dysfunction syndrome
     Route: 065
  4. VANCOMYCIN [Suspect]
     Active Substance: VANCOMYCIN
     Indication: Multiple organ dysfunction syndrome
     Route: 065
  5. CLARITHROMYCIN [Suspect]
     Active Substance: CLARITHROMYCIN
     Indication: Lepromatous leprosy
     Route: 065
  6. MOXIFLOXACIN [Suspect]
     Active Substance: MOXIFLOXACIN
     Indication: Lepromatous leprosy
     Route: 065
  7. PIPERACILLIN SODIUM\TAZOBACTAM SODIUM [Suspect]
     Active Substance: PIPERACILLIN SODIUM\TAZOBACTAM SODIUM
     Indication: Multiple organ dysfunction syndrome
     Route: 065

REACTIONS (10)
  - Cardiac arrest [Fatal]
  - Histoplasmosis disseminated [Fatal]
  - Haemophagocytic lymphohistiocytosis [Fatal]
  - Intravascular haemolysis [Fatal]
  - Hyperkalaemia [Fatal]
  - Immune-mediated adverse reaction [Unknown]
  - Condition aggravated [Unknown]
  - Pancytopenia [Unknown]
  - Product dose omission issue [Unknown]
  - Off label use [Unknown]
